FAERS Safety Report 8314182-2 (Version None)
Quarter: 2012Q2

REPORT INFORMATION
  Report Type: 
  Country: None (occurrence: None)
  Receive Date: 20120426
  Receipt Date: 20120417
  Transmission Date: 20120825
  Serious: Yes (Hospitalization, Other)
  Sender: FDA-Public Use
  Company Number: PHHY2012AU005482

PATIENT
  Sex: Female

DRUGS (16)
  1. ATORVASTATIN [Concomitant]
     Dosage: 20 MG, NOCTE
     Route: 048
  2. SOLIAN [Concomitant]
     Dates: start: 20001201, end: 20051101
  3. RESPERIDONE CONSIN [Concomitant]
     Dosage: 37.5 MG, UNK
     Dates: start: 20051101, end: 20080301
  4. LEVOTHYROXINE SODIUM [Concomitant]
     Dosage: 50 UG, UNK
  5. DECONADE [Concomitant]
     Dates: start: 20001201, end: 20051101
  6. QUETIAPINE [Concomitant]
     Dosage: 300 MG, UNK
     Dates: start: 20051101, end: 20080301
  7. CIPRANIL [Concomitant]
     Dosage: 40 MG, MANE
     Route: 048
  8. PANCREATIN TRIPLE STRENGTH CAP [Concomitant]
     Dosage: 10000 UNITS, TDS
  9. FUROSEMIDE [Concomitant]
  10. FLUPENTIXOL [Concomitant]
     Dates: start: 20001201, end: 20051101
  11. SUSTAGEN [Concomitant]
  12. RISPERIDONE [Concomitant]
     Dosage: 5 MG, BID
     Route: 048
     Dates: start: 20051101, end: 20080301
  13. CLOZARIL [Suspect]
     Indication: SCHIZOPHRENIA
     Dates: start: 19980224, end: 19980501
  14. OLANZAPINE [Concomitant]
     Dates: start: 20001201, end: 20051101
  15. QUETIAPINE [Concomitant]
     Dates: start: 20001201, end: 20051101
  16. QUETIAPINE [Concomitant]
     Dosage: 1100 MG, UNK
     Dates: start: 20090301

REACTIONS (19)
  - SUICIDAL IDEATION [None]
  - DYSTONIA [None]
  - WEIGHT DECREASED [None]
  - AKATHISIA [None]
  - OEDEMA PERIPHERAL [None]
  - AFFECTIVE DISORDER [None]
  - NEUTROPENIA [None]
  - DIARRHOEA [None]
  - HYPERCHOLESTEROLAEMIA [None]
  - PANCREATIC INSUFFICIENCY [None]
  - HALLUCINATION, AUDITORY [None]
  - HALLUCINATION, VISUAL [None]
  - WHITE BLOOD CELL COUNT DECREASED [None]
  - PSYCHOTIC DISORDER [None]
  - TYPE 2 DIABETES MELLITUS [None]
  - HYPERKALAEMIA [None]
  - STRESS [None]
  - HYPOTHYROIDISM [None]
  - HYPERTENSION [None]
